FAERS Safety Report 15147534 (Version 2)
Quarter: 2018Q3

REPORT INFORMATION
  Report Type: Spontaneous
  Country: US (occurrence: US)
  Receive Date: 20180716
  Receipt Date: 20180721
  Transmission Date: 20181010
  Serious: Yes (Death, Life-Threatening, Hospitalization)
  Sender: FDA-Public Use
  Company Number: US-AXELLIA-001768

PATIENT
  Age: 53 Year
  Sex: Male
  Weight: 121 kg

DRUGS (1)
  1. VANCOMYCIN XELLIA [Suspect]
     Active Substance: VANCOMYCIN
     Indication: OSTEOMYELITIS
     Dosage: 12 DOSES?STRENGTH: 1.0 GM
     Route: 042
     Dates: start: 20180619, end: 20180619

REACTIONS (3)
  - Nausea [Unknown]
  - Cardiac arrest [Fatal]
  - Malaise [Unknown]

NARRATIVE: CASE EVENT DATE: 20180619
